FAERS Safety Report 10361948 (Version 1)
Quarter: 2014Q1

REPORT INFORMATION
  Report Type: Spontaneous
  Country: US (occurrence: None)
  Receive Date: 20140306
  Receipt Date: 20140306
  Transmission Date: 20141002
  Serious: Yes (Other)
  Sender: FDA-Public Use
  Company Number: 163-21880-13073728

PATIENT
  Age: 66 Year
  Sex: Male

DRUGS (10)
  1. REVLIMID [Suspect]
     Indication: PLASMA CELL MYELOMA
     Dosage: 15 MG, 21 IN 28 D, PO
     Route: 048
     Dates: start: 20101202
  2. OMEPRAZOLE (OMEPRAZOLE) (UNKNOWN) [Concomitant]
  3. ZOMETA (ZOLEDRONIC ACID) (UNKNOWN) [Concomitant]
  4. AMLODIPINE BESYLATE (AMLODIPINE BESILATE) (UNKNOWN) [Concomitant]
  5. FLUTICASONE PROPIONATE (FLUTICASONE PROPIONATE) (SPRAY) [Concomitant]
  6. ASPIRIN (ACETYLSALICYLIC ACID) (UNKNOWN) (ACETYLSALICYLIC ACID) [Concomitant]
  7. PHENYTOIN SODIUM EXT (PHENYTOIN SODIUM) (UNKNOWN) [Concomitant]
  8. WARFARIN SODIUM (WARFARIN SODIUM) (UNKNOWN) [Concomitant]
  9. MECLIZINE (MECLOZINE) (UNKNOWN) [Concomitant]
  10. VITAMIN D3 (COLECALCIFEROL) (UNKNOWN) [Concomitant]

REACTIONS (1)
  - Thrombosis [None]
